FAERS Safety Report 6920007 (Version 4)
Quarter: 2020Q3

REPORT INFORMATION
  Report Type: Report from Study
  Country: IT (occurrence: IT)
  Receive Date: 20090225
  Receipt Date: 20100323
  Transmission Date: 20201104
  Serious: Yes (Other)
  Sender: FDA-Public Use
  Company Number: IT-JNJFOC-20090102861

PATIENT
  Age: 44 Year
  Sex: Male
  Weight: 60 kg

DRUGS (4)
  1. RALTEGRAVIR. [Concomitant]
     Active Substance: RALTEGRAVIR
     Indication: HIV INFECTION
  2. INTELENCE [Suspect]
     Active Substance: ETRAVIRINE
     Indication: HIV INFECTION
  3. INTELENCE [Suspect]
     Active Substance: ETRAVIRINE
  4. MARAVIROC [Suspect]
     Active Substance: MARAVIROC
     Indication: HIV INFECTION

REACTIONS (1)
  - Hodgkin^s disease [Not Recovered/Not Resolved]

NARRATIVE: CASE EVENT DATE: 20081201
